FAERS Safety Report 24660514 (Version 1)
Quarter: 2024Q4

REPORT INFORMATION
  Report Type: Spontaneous
  Country: IT (occurrence: IT)
  Receive Date: 20241125
  Receipt Date: 20241125
  Transmission Date: 20250114
  Serious: Yes (Other)
  Sender: AMGEN
  Company Number: IT-AMGEN-ITASP2024231615

PATIENT

DRUGS (2)
  1. ADALIMUMAB [Suspect]
     Active Substance: ADALIMUMAB
     Indication: Colitis ulcerative
     Dosage: UNK
     Route: 065
  2. ADALIMUMAB [Suspect]
     Active Substance: ADALIMUMAB
     Indication: Crohn^s disease

REACTIONS (11)
  - Haemophagocytic lymphohistiocytosis [Unknown]
  - Human bocavirus infection [Unknown]
  - Mycoplasma infection [Unknown]
  - Viral infection [Unknown]
  - Epstein-Barr virus infection [Unknown]
  - Parvovirus infection [Unknown]
  - Adenovirus infection [Unknown]
  - Rotavirus infection [Unknown]
  - Parainfluenzae virus infection [Unknown]
  - Rhinovirus infection [Unknown]
  - Infection [Unknown]
